FAERS Safety Report 8375932-2 (Version None)
Quarter: 2012Q2

REPORT INFORMATION
  Report Type: 
  Country: None (occurrence: None)
  Receive Date: 20120522
  Receipt Date: 20120514
  Transmission Date: 20120825
  Serious: Yes (Life-Threatening, Hospitalization, Other)
  Sender: FDA-Public Use
  Company Number: US-BAYER-2012-007500

PATIENT
  Age: 30 Year
  Sex: Female
  Weight: 102.4 kg

DRUGS (5)
  1. DROSPIRENONE AND ETHINYL ESTRADIOL [Suspect]
     Indication: CONTRACEPTION
     Dosage: UNK
     Dates: start: 20090101, end: 20090701
  2. AMOXICILLIN AND CLAVULANATE POTASSIUM [Concomitant]
     Dosage: 875 MG, UNK
     Dates: start: 20090611
  3. NITROGLYCERIN [Concomitant]
     Indication: CHEST PAIN
     Route: 060
  4. BETA BLOCKING AGENTS [Concomitant]
     Indication: TACHYCARDIA
  5. YASMIN [Suspect]
     Indication: CONTRACEPTION
     Dosage: UNK
     Dates: start: 20080901, end: 20090101

REACTIONS (12)
  - DYSPNOEA [None]
  - MUSCULOSKELETAL PAIN [None]
  - PAIN IN EXTREMITY [None]
  - DISCOMFORT [None]
  - PULMONARY EMBOLISM [None]
  - FEAR [None]
  - EMOTIONAL DISTRESS [None]
  - GAIT DISTURBANCE [None]
  - GALLBLADDER DISORDER [None]
  - DEEP VEIN THROMBOSIS [None]
  - PAIN [None]
  - DIZZINESS [None]
